FAERS Safety Report 24021468 (Version 1)
Quarter: 2024Q2

REPORT INFORMATION
  Report Type: Spontaneous
  Country: CN (occurrence: CN)
  Receive Date: 20240627
  Receipt Date: 20240627
  Transmission Date: 20240716
  Serious: No
  Sender: FDA-Public Use
  Company Number: CN-ROCHE-3565934

PATIENT
  Age: 56 Year
  Sex: Male
  Weight: 60.0 kg

DRUGS (2)
  1. COLUMVI [Suspect]
     Active Substance: GLOFITAMAB-GXBM
     Indication: Lymphoma
     Route: 041
     Dates: start: 20240421, end: 20240515
  2. COLUMVI [Suspect]
     Active Substance: GLOFITAMAB-GXBM
     Route: 041
     Dates: start: 20240501

REACTIONS (2)
  - Platelet count decreased [Recovered/Resolved]
  - Blood pressure decreased [Recovered/Resolved]

NARRATIVE: CASE EVENT DATE: 20240501
